FAERS Safety Report 5192548-X (Version None)
Quarter: 2006Q4

REPORT INFORMATION
  Report Type: 
  Country: None (occurrence: None)
  Receive Date: 20061220
  Receipt Date: 20061208
  Transmission Date: 20070319
  Serious: Yes (Death)
  Sender: FDA-Public Use
  Company Number: 231210

PATIENT
  Age: 60 Year
  Sex: Male

DRUGS (4)
  1. RITUXAN [Suspect]
     Indication: DIFFUSE LARGE B-CELL LYMPHOMA
     Dates: start: 20041101, end: 20050301
  2. RITUXAN [Suspect]
     Indication: DIFFUSE LARGE B-CELL LYMPHOMA
     Dates: start: 20050201, end: 20050301
  3. METHOTREXATE [Concomitant]
  4. CYTARABINE [Concomitant]

REACTIONS (4)
  - ANTI-HBC ANTIBODY POSITIVE [None]
  - DEPRESSED LEVEL OF CONSCIOUSNESS [None]
  - HEPATITIS B [None]
  - HYPERAMMONAEMIA [None]
